FAERS Safety Report 10371185 (Version 1)
Quarter: 2014Q1

REPORT INFORMATION
  Report Type: Spontaneous
  Country: US (occurrence: None)
  Receive Date: 20140306
  Receipt Date: 20140306
  Transmission Date: 20141002
  Serious: Yes (Hospitalization)
  Sender: FDA-Public Use
  Company Number: 163-21880-13073670

PATIENT
  Age: 61 Year
  Sex: Male
  Weight: 159.67 kg

DRUGS (30)
  1. REVLIMID (LENALIDOMIDE) (10 MILLIGRAM, CAPSULES) [Suspect]
     Indication: NON-HODGKIN^S LYMPHOMA
     Route: 048
     Dates: start: 20130228, end: 201306
  2. ALLEGRA (FEXOFENADINE HYDROCHLORIDE) [Concomitant]
  3. ALLOPURINOL [Concomitant]
  4. AMBIEN (ZOLPIDEM TARTRATE) [Concomitant]
  5. COUMADIN (WARFARIN SODIUM) [Concomitant]
  6. DANAZOL [Concomitant]
  7. FAMVIR (FAMCICLOVIR) [Concomitant]
  8. FLOMAX (TAMSULOSIN HYDROCHLORIDE) [Concomitant]
  9. FOLIC ACID [Concomitant]
  10. FUROSEMIDE [Concomitant]
  11. GABAPENTIN [Concomitant]
  12. GLIPIZIDE [Concomitant]
  13. KLOR-CON (POTASSIUM CHLORIDE) [Concomitant]
  14. LIPITOR (ATORVASTATIN) [Concomitant]
  15. MAGNESIUM [Concomitant]
  16. METOPROLOL [Concomitant]
  17. MIRALAX (MACROGOL) [Concomitant]
  18. PERCOCET (OXYCOCET) [Concomitant]
  19. PREDNISONE [Concomitant]
  20. PROAIR (FLUTICASONE PROPIONATE) [Concomitant]
  21. PROCHLORPERAZINE [Concomitant]
  22. PROTONIX [Concomitant]
  23. QVAR (BECLOMETASONE DIPROPIONATE) [Concomitant]
  24. SENNA [Concomitant]
  25. SYSTANE (RHINARIS) [Concomitant]
  26. VITAMIN B12 (CYANCOBALAMIN) [Concomitant]
  27. XANAX (ALPRAZOLAM) [Concomitant]
  28. ZOFRAN (ONDANSETRON HYDROCHLORIDE) [Concomitant]
  29. ZOLOFT (SERTRALINE HYDROCHLORIDE) [Concomitant]
  30. VITAMIN D (ERGOCALCIFEROL) [Concomitant]

REACTIONS (2)
  - Pneumonia [None]
  - Respiratory tract congestion [None]
